FAERS Safety Report 5533852-2 (Version None)
Quarter: 2007Q4

REPORT INFORMATION
  Report Type: 
  Country: None (occurrence: None)
  Receive Date: 20071204
  Receipt Date: 20071129
  Transmission Date: 20080405
  Serious: Yes (Disabling, Other)
  Sender: FDA-Public Use
  Company Number: GB-MERCK-0711GBR00122

PATIENT
  Age: 74 Year
  Sex: Female

DRUGS (4)
  1. COZAAR [Suspect]
     Route: 048
  2. AMLODIPINE BESYLATE [Concomitant]
     Route: 065
  3. BENDROFLUMETHIAZIDE [Concomitant]
     Route: 065
  4. LEVOTHYROXINE SODIUM [Concomitant]
     Route: 065

REACTIONS (1)
  - CUTANEOUS LUPUS ERYTHEMATOSUS [None]
